FAERS Safety Report 20701418 (Version 2)
Quarter: 2022Q2

REPORT INFORMATION
  Report Type: Report from Study
  Country: US (occurrence: US)
  Receive Date: 20220412
  Receipt Date: 20220414
  Transmission Date: 20220721
  Serious: Yes (Hospitalization)
  Sender: FDA-Public Use
  Company Number: US-JNJFOC-20220411596

PATIENT
  Age: 24 Year
  Sex: Male

DRUGS (22)
  1. INFLIXIMAB [Suspect]
     Active Substance: INFLIXIMAB
     Indication: Inflammatory bowel disease
     Route: 042
     Dates: start: 20120425, end: 20190314
  2. STELARA [Suspect]
     Active Substance: USTEKINUMAB
     Route: 065
     Dates: start: 20190415, end: 20190819
  3. ENTYVIO [Suspect]
     Active Substance: VEDOLIZUMAB
     Route: 065
     Dates: start: 20210222, end: 202103
  4. HUMIRA [Concomitant]
     Active Substance: ADALIMUMAB
  5. IPRATROPIUM BROMIDE [Concomitant]
     Active Substance: IPRATROPIUM BROMIDE
  6. HYDROCORTISONE [Concomitant]
     Active Substance: HYDROCORTISONE
  7. MAGNESIUM OXIDE [Concomitant]
     Active Substance: MAGNESIUM OXIDE
  8. LORATADINE [Concomitant]
     Active Substance: LORATADINE
  9. PREDNISONE [Concomitant]
     Active Substance: PREDNISONE
  10. OXYCODONE [Concomitant]
     Active Substance: OXYCODONE
  11. ONDANSETRON [Concomitant]
     Active Substance: ONDANSETRON
  12. PREGABALIN [Concomitant]
     Active Substance: PREGABALIN
  13. SULFAMETHOXAZOLE [Concomitant]
     Active Substance: SULFAMETHOXAZOLE
  14. SIMETHICONE (DIMETHICONE) [Concomitant]
     Active Substance: DIMETHICONE
  15. CLINDAMYCIN PHOSPHATE [Concomitant]
     Active Substance: CLINDAMYCIN PHOSPHATE
  16. BENZOYL PEROXIDE [Concomitant]
     Active Substance: BENZOYL PEROXIDE
  17. KETOCONAZOLE [Concomitant]
     Active Substance: KETOCONAZOLE
  18. HYDROMORPHONE HCL [Concomitant]
     Active Substance: HYDROMORPHONE HYDROCHLORIDE
  19. DOXYCYCLINE HYCLATE [Concomitant]
     Active Substance: DOXYCYCLINE HYCLATE
  20. TOFACITINIB [Concomitant]
     Active Substance: TOFACITINIB
  21. ERGOCALCIFEROL [Concomitant]
     Active Substance: ERGOCALCIFEROL
  22. ZINC SULFATE [Concomitant]
     Active Substance: ZINC SULFATE

REACTIONS (1)
  - Crohn^s disease [Recovered/Resolved]

NARRATIVE: CASE EVENT DATE: 20220128
